FAERS Safety Report 9872090 (Version 2)
Quarter: 2014Q1

REPORT INFORMATION
  Report Type: Spontaneous
  Country: US (occurrence: US)
  Receive Date: 20140205
  Receipt Date: 20140205
  Transmission Date: 20141002
  Serious: No
  Sender: FDA-Public Use
  Company Number: US-ALLERGAN-1307074US

PATIENT
  Age: 47 Year
  Sex: Female

DRUGS (2)
  1. BOTOX [Suspect]
     Indication: MIGRAINE
     Dosage: UNK, SINGLE
     Route: 030
     Dates: start: 20130413, end: 20130413
  2. MAXALT [Suspect]
     Indication: PRODUCT USED FOR UNKNOWN INDICATION

REACTIONS (8)
  - Productive cough [Unknown]
  - Influenza [Unknown]
  - Oral discomfort [Unknown]
  - Dysphonia [Unknown]
  - Muscle tightness [Not Recovered/Not Resolved]
  - Feeling abnormal [Unknown]
  - Pain in jaw [Not Recovered/Not Resolved]
  - Musculoskeletal stiffness [Not Recovered/Not Resolved]
